FAERS Safety Report 8967929 (Version 1)
Quarter: 2012Q4

REPORT INFORMATION
  Report Type: 
  Country: US (occurrence: US)
  Receive Date: 20121218
  Receipt Date: 20121218
  Transmission Date: 20130627
  Serious: No
  Sender: FDA-Public Use
  Company Number: US-GLAXOSMITHKLINE-A0988776A

PATIENT
  Age: 69 Year
  Sex: Female

DRUGS (7)
  1. COREG CR [Suspect]
     Indication: PRODUCT USED FOR UNKNOWN INDICATION
     Dosage: 80MG Per day
     Route: 048
  2. ACCUPRIL [Concomitant]
  3. OXYCODONE [Concomitant]
  4. DIAZEPAM [Concomitant]
  5. AMITRIPTYLINE [Concomitant]
  6. SPIRIVA [Concomitant]
  7. SINGULAR [Concomitant]

REACTIONS (1)
  - Drug administration error [Recovered/Resolved]
